FAERS Safety Report 9498964 (Version 1)
Quarter: 2013Q3

REPORT INFORMATION
  Report Type: Report from Study
  Country: US (occurrence: US)
  Receive Date: 20130904
  Receipt Date: 20130904
  Transmission Date: 20140515
  Serious: Yes (Hospitalization, Other)
  Sender: FDA-Public Use
  Company Number: US-ROCHE-1269134

PATIENT
  Age: 30 Year
  Sex: Female

DRUGS (16)
  1. XOLAIR [Suspect]
     Indication: ASTHMA
     Route: 065
  2. XOLAIR [Suspect]
     Indication: BRONCHITIS
  3. PULMOZYME [Suspect]
     Indication: ASTHMA
     Route: 065
  4. PULMOZYME [Suspect]
     Indication: BRONCHITIS
  5. AZITHROMYCIN [Concomitant]
     Route: 048
  6. CREON [Concomitant]
     Dosage: 24000 UNITS TID
     Route: 048
  7. DEXILANT [Concomitant]
     Route: 048
  8. NASONEX [Concomitant]
     Dosage: 2 SPRAYS ONCE A DAY
     Route: 055
  9. POTASSIUM CHLORIDE [Concomitant]
     Route: 048
  10. PREDNISONE [Concomitant]
     Route: 065
  11. QVAR [Concomitant]
     Dosage: 2 PUFFS TWICE A DAY
     Route: 055
  12. SYMBICORT [Concomitant]
     Dosage: 2 PUFFS BID
     Route: 055
  13. TOBI [Concomitant]
     Dosage: 1 VIAL TWICE A DAY
     Route: 065
  14. TRIAMTERENE/HCTZ [Concomitant]
     Dosage: 37.5-25 MG, 1 CAPSULE DAILY
     Route: 048
  15. XOPENEX [Concomitant]
     Dosage: INHALE 1 VIAL TID
     Route: 055
  16. ZYFLO [Concomitant]
     Dosage: 2 TABS QD
     Route: 065

REACTIONS (7)
  - Clostridium difficile colitis [Unknown]
  - Pneumonia [Unknown]
  - Pseudomonas infection [Unknown]
  - Stenotrophomonas infection [Unknown]
  - Increased viscosity of bronchial secretion [Unknown]
  - Nocardiosis [Recovered/Resolved]
  - Aspartate aminotransferase decreased [Unknown]
